FAERS Safety Report 22346132 (Version 1)
Quarter: 2023Q2

REPORT INFORMATION
  Report Type: Spontaneous
  Country: US (occurrence: None)
  Receive Date: 20230519
  Receipt Date: 20230519
  Transmission Date: 20230721
  Serious: Yes (Hospitalization)
  Sender: FDA-Public Use
  Company Number: None

PATIENT
  Age: 60 Year
  Sex: Male
  Weight: 54.43 kg

DRUGS (2)
  1. XELODA [Suspect]
     Active Substance: CAPECITABINE
     Indication: Rectal cancer
     Dosage: 1650MG BID X 14 DAYS ORAL?
     Route: 048
     Dates: start: 20230509
  2. XELODA [Suspect]
     Active Substance: CAPECITABINE
     Dates: start: 20230511

REACTIONS (2)
  - Chest pain [None]
  - Therapy cessation [None]

NARRATIVE: CASE EVENT DATE: 20230511
